FAERS Safety Report 8401450-9 (Version None)
Quarter: 2012Q2

REPORT INFORMATION
  Report Type: 
  Country: None (occurrence: None)
  Receive Date: 20120601
  Receipt Date: 20120530
  Transmission Date: 20120825
  Serious: Yes (Other)
  Sender: FDA-Public Use
  Company Number: PHHY2012BR033731

PATIENT
  Age: 53 Year
  Sex: Female

DRUGS (2)
  1. COMBIPATCH [Suspect]
     Indication: HORMONE REPLACEMENT THERAPY
     Dosage: 1 DF, QW2
     Route: 062
  2. COMBIPATCH [Suspect]
     Dosage: 1 DF,EVERY DAYS
     Route: 062

REACTIONS (8)
  - BLOOD PRESSURE INCREASED [None]
  - MALAISE [None]
  - CONSTIPATION [None]
  - TENSION [None]
  - INCORRECT DOSE ADMINISTERED [None]
  - ABDOMINAL PAIN [None]
  - HOT FLUSH [None]
  - NERVOUSNESS [None]
